FAERS Safety Report 14411609 (Version 1)
Quarter: 2018Q1

REPORT INFORMATION
  Report Type: Spontaneous
  Country: US (occurrence: US)
  Receive Date: 20180119
  Receipt Date: 20180119
  Transmission Date: 20180509
  Serious: No
  Sender: FDA-Public Use
  Company Number: US-ASTRAZENECA-2018SE01635

PATIENT
  Sex: Female

DRUGS (2)
  1. TAGRISSO [Suspect]
     Active Substance: OSIMERTINIB
     Route: 048
  2. RADIATION TREATMENT [Concomitant]
     Active Substance: RADIATION THERAPY

REACTIONS (4)
  - Dry skin [Unknown]
  - Radiation alopecia [Unknown]
  - Skin burning sensation [Unknown]
  - Anxiety [Unknown]
